FAERS Safety Report 17091312 (Version 1)
Quarter: 2019Q4

REPORT INFORMATION
  Report Type: Spontaneous
  Country: US (occurrence: US)
  Receive Date: 20191129
  Receipt Date: 20191129
  Transmission Date: 20200122
  Serious: No
  Sender: FDA-Public Use
  Company Number: US-NEUROCRINE BIOSCIENCES INC.-2019NBI03570

PATIENT
  Sex: Male

DRUGS (1)
  1. INGREZZA [Suspect]
     Active Substance: VALBENAZINE
     Indication: TARDIVE DYSKINESIA
     Route: 048
     Dates: start: 20190923, end: 20191113

REACTIONS (6)
  - Dizziness [Unknown]
  - Arthralgia [Unknown]
  - Palpitations [Unknown]
  - Dyspnoea [Unknown]
  - Restlessness [Unknown]
  - Pollakiuria [Unknown]

NARRATIVE: CASE EVENT DATE: 2019
